FAERS Safety Report 6565212-X (Version None)
Quarter: 2010Q1

REPORT INFORMATION
  Report Type: 
  Country: None (occurrence: None)
  Receive Date: 20100201
  Receipt Date: 20100126
  Transmission Date: 20100710
  Serious: Yes (Other)
  Sender: FDA-Public Use
  Company Number: B0629971A

PATIENT
  Sex: Female

DRUGS (2)
  1. ZELITREX [Suspect]
     Dosage: 500MG SIX TIMES PER DAY
     Route: 048
     Dates: start: 20091101
  2. METHOTREXATE [Concomitant]
     Indication: RHEUMATOID ARTHRITIS

REACTIONS (1)
  - ANAEMIA MACROCYTIC [None]
